FAERS Safety Report 10039932 (Version 4)
Quarter: 2014Q2

REPORT INFORMATION
  Report Type: Spontaneous
  Country: US (occurrence: US)
  Receive Date: 20140326
  Receipt Date: 20140429
  Transmission Date: 20141212
  Serious: Yes (Hospitalization, Other)
  Sender: FDA-Public Use
  Company Number: US-JNJFOC-20140311258

PATIENT
  Sex: Male
  Weight: 89.81 kg

DRUGS (2)
  1. REMICADE [Suspect]
     Indication: CROHN^S DISEASE
     Route: 042
  2. PANTOPRAZOLE [Concomitant]
     Route: 065

REACTIONS (2)
  - Lung neoplasm malignant [Not Recovered/Not Resolved]
  - Transfusion [Unknown]
